FAERS Safety Report 8596670 (Version 5)
Quarter: 2014Q2

REPORT INFORMATION
  Report Type: Spontaneous
  Country: US (occurrence: US)
  Receive Date: 20120605
  Receipt Date: 20140523
  Transmission Date: 20141212
  Serious: Yes (Disabling)
  Sender: FDA-Public Use
  Company Number: US-ASTRAZENECA-2012SE35610

PATIENT
  Age: 50 Year
  Sex: Male

DRUGS (47)
  1. NEXIUM [Suspect]
     Indication: ULCER HAEMORRHAGE
     Route: 048
     Dates: start: 2004
  2. NEXIUM [Suspect]
     Indication: GASTROOESOPHAGEAL REFLUX DISEASE
     Route: 048
     Dates: start: 2004
  3. NEXIUM [Suspect]
     Indication: DYSPEPSIA
     Route: 048
     Dates: start: 2004
  4. NEXIUM [Suspect]
     Indication: ULCER HAEMORRHAGE
     Route: 048
     Dates: start: 20050922
  5. NEXIUM [Suspect]
     Indication: GASTROOESOPHAGEAL REFLUX DISEASE
     Route: 048
     Dates: start: 20050922
  6. NEXIUM [Suspect]
     Indication: DYSPEPSIA
     Route: 048
     Dates: start: 20050922
  7. NEXIUM [Suspect]
     Indication: ULCER HAEMORRHAGE
     Route: 048
     Dates: start: 20060313, end: 20060622
  8. NEXIUM [Suspect]
     Indication: GASTROOESOPHAGEAL REFLUX DISEASE
     Route: 048
     Dates: start: 20060313, end: 20060622
  9. NEXIUM [Suspect]
     Indication: DYSPEPSIA
     Route: 048
     Dates: start: 20060313, end: 20060622
  10. NEXIUM [Suspect]
     Indication: ULCER HAEMORRHAGE
     Route: 048
     Dates: start: 20111202
  11. NEXIUM [Suspect]
     Indication: GASTROOESOPHAGEAL REFLUX DISEASE
     Route: 048
     Dates: start: 20111202
  12. NEXIUM [Suspect]
     Indication: DYSPEPSIA
     Route: 048
     Dates: start: 20111202
  13. NEXIUM [Suspect]
     Indication: ULCER HAEMORRHAGE
     Route: 048
     Dates: start: 20130529
  14. NEXIUM [Suspect]
     Indication: GASTROOESOPHAGEAL REFLUX DISEASE
     Route: 048
     Dates: start: 20130529
  15. NEXIUM [Suspect]
     Indication: DYSPEPSIA
     Route: 048
     Dates: start: 20130529
  16. PREVACID [Concomitant]
     Indication: GASTROOESOPHAGEAL REFLUX DISEASE
  17. PREVACID [Concomitant]
     Indication: GASTROOESOPHAGEAL REFLUX DISEASE
  18. TUMS [Concomitant]
     Dates: start: 1996, end: 2000
  19. ROLAID [Concomitant]
     Dates: start: 1996, end: 2000
  20. MYLANTA [Concomitant]
     Dates: start: 1996, end: 2000
  21. METOPROLOL TARTRATE [Concomitant]
     Indication: BLOOD PRESSURE ABNORMAL
  22. METOPROLOL TARTRATE [Concomitant]
     Indication: BLOOD PRESSURE ABNORMAL
     Dates: start: 20110929
  23. METOPROLOL TARTRATE [Concomitant]
     Indication: BLOOD PRESSURE ABNORMAL
     Dates: start: 20111220
  24. ENALAPRIL [Concomitant]
     Indication: BLOOD PRESSURE ABNORMAL
  25. ENALAPRIL [Concomitant]
     Indication: BLOOD PRESSURE ABNORMAL
     Dates: start: 20110616
  26. ENALAPRIL [Concomitant]
     Indication: BLOOD PRESSURE ABNORMAL
     Dates: start: 20111220
  27. CLONIDINE [Concomitant]
     Indication: BACK INJURY
     Dates: start: 20111013
  28. CLONIDINE [Concomitant]
     Indication: BACK INJURY
     Dates: start: 20111013
  29. NORVASC [Concomitant]
  30. NORVASC [Concomitant]
     Dates: start: 20111207
  31. VICODIN [Concomitant]
     Dosage: 5-500
     Dates: start: 20111031
  32. SOM [Concomitant]
  33. GABAPENTIN [Concomitant]
     Dates: start: 20110710
  34. GABAPENTIN [Concomitant]
     Dates: start: 20110922
  35. OMEPRAZOLE [Concomitant]
     Dates: start: 20111013
  36. CYCLOBENZAPRINE [Concomitant]
     Dates: start: 20111125
  37. METHYLPREDNISOLONE [Concomitant]
     Dates: start: 20111118
  38. SUBOXONE [Concomitant]
     Dosage: 8 MG/ 2 MG
     Dates: start: 20120119
  39. AMITRIPTYLINE [Concomitant]
     Dates: start: 20121204
  40. AMITRIPTYLINE [Concomitant]
     Dates: start: 20130605
  41. CARISOPRODOL [Concomitant]
     Dates: start: 20080627
  42. METHADONE [Concomitant]
     Dates: start: 20100721
  43. MORPHINE SULFATE [Concomitant]
     Dates: start: 20100721
  44. ALPRAZOLAM [Concomitant]
     Dates: start: 20100318
  45. AMLODIPINE [Concomitant]
     Dates: start: 20130103
  46. HYDROCODONE/ACETAMINOPHEN [Concomitant]
     Dosage: 5-500 TAKE ONE TABLET EVERY 12 HOURS
  47. BUTALBITAL/APAP/CAFFEINE [Concomitant]
     Dates: start: 20080625

REACTIONS (10)
  - Arthropathy [Unknown]
  - Back disorder [Unknown]
  - Osteoporosis [Unknown]
  - Ankle fracture [Unknown]
  - Upper limb fracture [Unknown]
  - Bone pain [Unknown]
  - Arthritis [Unknown]
  - Humerus fracture [Unknown]
  - Limb injury [Unknown]
  - Foot deformity [Unknown]
